FAERS Safety Report 14969334 (Version 3)
Quarter: 2018Q3

REPORT INFORMATION
  Report Type: Report from Study
  Country: FR (occurrence: FR)
  Receive Date: 20180604
  Receipt Date: 20180717
  Transmission Date: 20181010
  Serious: Yes (Hospitalization)
  Sender: FDA-Public Use
  Company Number: FR-B.I. PHARMACEUTICALS,INC./RIDGEFIELD-2018-BI-014612

PATIENT
  Age: 75 Year
  Sex: Male
  Weight: 78 kg

DRUGS (10)
  1. CISPLATIN. [Suspect]
     Active Substance: CISPLATIN
     Indication: PLEURAL MESOTHELIOMA MALIGNANT
     Dosage: DOSE ? 75 MG/M2
     Route: 042
     Dates: start: 20180104, end: 20180104
  2. BINOCRIT [Concomitant]
     Active Substance: ERYTHROPOIETIN
     Indication: ANAEMIA
     Route: 058
     Dates: start: 20180312
  3. BIBF 1120 [Suspect]
     Active Substance: NINTEDANIB
     Indication: PLEURAL MESOTHELIOMA MALIGNANT
     Route: 048
     Dates: start: 20180105
  4. PEMETREXED. [Suspect]
     Active Substance: PEMETREXED
     Dosage: DOSE? 500MG/M2
     Route: 042
     Dates: start: 20180228
  5. CISPLATIN. [Suspect]
     Active Substance: CISPLATIN
     Dosage: DOSE ? 75 MG/M2
     Route: 042
     Dates: start: 20180123, end: 20180314
  6. MICARDIS [Concomitant]
     Active Substance: TELMISARTAN
     Indication: HYPERTENSION
     Route: 048
     Dates: start: 2002
  7. PEMETREXED. [Suspect]
     Active Substance: PEMETREXED
     Indication: PLEURAL MESOTHELIOMA MALIGNANT
     Route: 042
     Dates: start: 20180308, end: 20180308
  8. VERAPAMIL [Concomitant]
     Active Substance: VERAPAMIL HYDROCHLORIDE
     Indication: HYPERTENSION
     Route: 048
     Dates: start: 20180221
  9. PEMETREXED. [Suspect]
     Active Substance: PEMETREXED
     Dosage: DOSE? 500MG/M2
     Route: 042
     Dates: start: 20180314
  10. PEMETREXED. [Suspect]
     Active Substance: PEMETREXED
     Dosage: DOSE? 500MG/M2
     Route: 042
     Dates: start: 20180123

REACTIONS (3)
  - Anaemia [Not Recovered/Not Resolved]
  - Thrombocytopenia [Recovered/Resolved]
  - Neutropenia [Recovered/Resolved]

NARRATIVE: CASE EVENT DATE: 20180130
